FAERS Safety Report 6738023-X (Version None)
Quarter: 2010Q2

REPORT INFORMATION
  Report Type: 
  Country: None (occurrence: None)
  Receive Date: 20100524
  Receipt Date: 20100517
  Transmission Date: 20101027
  Serious: Yes (Disabling)
  Sender: FDA-Public Use
  Company Number: US-ASTRAZENECA-2010SE22379

PATIENT
  Age: 59 Year
  Sex: Female

DRUGS (7)
  1. SYMBICORT [Suspect]
     Route: 055
  2. CLONIDINE [Concomitant]
  3. TRAVATAN [Concomitant]
  4. NORVASC [Concomitant]
  5. PROVENTIL [Concomitant]
  6. IOPADENE [Concomitant]
  7. ALPHAGAN [Concomitant]

REACTIONS (3)
  - BLOOD PRESSURE INCREASED [None]
  - MUSCLE SPASMS [None]
  - WEIGHT INCREASED [None]
